FAERS Safety Report 9866560 (Version 3)
Quarter: 2015Q4

REPORT INFORMATION
  Report Type: Report from Study
  Country: US (occurrence: US)
  Receive Date: 20140204
  Receipt Date: 20151201
  Transmission Date: 20160305
  Serious: Yes (Hospitalization)
  Sender: FDA-Public Use
  Company Number: US-BIOGENIDEC-2014BI009929

PATIENT
  Age: 44 Year
  Sex: Female

DRUGS (2)
  1. TYSABRI [Suspect]
     Active Substance: NATALIZUMAB
     Indication: MULTIPLE SCLEROSIS
     Route: 042
     Dates: start: 20100301, end: 201311
  2. TYSABRI [Suspect]
     Active Substance: NATALIZUMAB
     Indication: MULTIPLE SCLEROSIS
     Route: 042

REACTIONS (3)
  - Large intestine perforation [Not Recovered/Not Resolved]
  - Coma [Recovered/Resolved]
  - Decubitus ulcer [Not Recovered/Not Resolved]

NARRATIVE: CASE EVENT DATE: 201311
